FAERS Safety Report 9763523 (Version 1)
Quarter: 2013Q4

REPORT INFORMATION
  Report Type: Spontaneous
  Country: US (occurrence: US)
  Receive Date: 20131216
  Receipt Date: 20131216
  Transmission Date: 20140711
  Serious: No
  Sender: FDA-Public Use
  Company Number: US-BIOGENIDEC-2013BI107695

PATIENT
  Age: 72 Year
  Sex: Female

DRUGS (7)
  1. TECFIDERA [Suspect]
     Indication: MULTIPLE SCLEROSIS
     Route: 048
     Dates: start: 20131020, end: 20131026
  2. TECFIDERA [Suspect]
     Indication: MULTIPLE SCLEROSIS
     Route: 048
     Dates: start: 20131027
  3. FOSAMAX [Concomitant]
  4. TOPROL XL [Concomitant]
  5. NORVASC [Concomitant]
  6. DETROL [Concomitant]
  7. DAYPRO [Concomitant]

REACTIONS (2)
  - Flushing [Unknown]
  - Erythema [Unknown]
